FAERS Safety Report 7766925-4 (Version None)
Quarter: 2011Q3

REPORT INFORMATION
  Report Type: 
  Country: None (occurrence: None)
  Receive Date: 20110922
  Receipt Date: 20110914
  Transmission Date: 20111222
  Serious: Yes (Hospitalization)
  Sender: FDA-Public Use
  Company Number: CA-ABBOTT-11P-028-0855080-00

PATIENT
  Sex: Female
  Weight: 79.45 kg

DRUGS (4)
  1. ISONIAZID [Concomitant]
     Indication: TUBERCULOSIS
     Route: 048
     Dates: start: 20101201
  2. HUMIRA [Suspect]
     Indication: CROHN'S DISEASE
     Route: 058
     Dates: start: 20101202, end: 20110811
  3. IMURAN [Concomitant]
     Indication: CROHN'S DISEASE
     Route: 048
     Dates: start: 20101201
  4. ORTHO TRI-CYCLEN [Concomitant]
     Indication: CONTRACEPTION
     Dosage: ONCE DAILY FOR 21 DAYS
     Dates: start: 20110701

REACTIONS (8)
  - MIGRAINE [None]
  - TONSILLAR ULCER [None]
  - SECRETION DISCHARGE [None]
  - LYMPHADENOPATHY [None]
  - PAIN [None]
  - PYREXIA [None]
  - INFECTIOUS MONONUCLEOSIS [None]
  - PRODUCTIVE COUGH [None]
